FAERS Safety Report 5981381-4 (Version None)
Quarter: 2008Q4

REPORT INFORMATION
  Report Type: 
  Country: None (occurrence: None)
  Receive Date: 20081126
  Receipt Date: 20081112
  Transmission Date: 20090506
  Serious: Yes (Other)
  Sender: FDA-Public Use
  Company Number: TOR 2008-0051

PATIENT
  Age: 56 Year
  Sex: Female

DRUGS (1)
  1. TOREMIFENE (TOREMIFENE) [Suspect]
     Indication: BREAST CANCER
     Dosage: 40 MG

REACTIONS (2)
  - BENIGN SOFT TISSUE NEOPLASM [None]
  - VAGINAL NEOPLASM [None]
